FAERS Safety Report 6266217-9 (Version None)
Quarter: 2009Q3

REPORT INFORMATION
  Report Type: 
  Country: None (occurrence: None)
  Receive Date: 20090713
  Receipt Date: 20090701
  Transmission Date: 20100115
  Serious: Yes (Other)
  Sender: FDA-Public Use
  Company Number: BR-ROCHE-641851

PATIENT
  Sex: Female
  Weight: 58 kg

DRUGS (1)
  1. ROACUTAN [Suspect]
     Indication: ACNE
     Route: 048
     Dates: start: 20080201, end: 20080630

REACTIONS (2)
  - ABORTION SPONTANEOUS [None]
  - HEART DISEASE CONGENITAL [None]
